FAERS Safety Report 23103343 (Version 2)
Quarter: 2023Q4

REPORT INFORMATION
  Report Type: Spontaneous
  Country: US (occurrence: US)
  Receive Date: 20231025
  Receipt Date: 20231116
  Transmission Date: 20240110
  Serious: No
  Sender: FDA-Public Use
  Company Number: US-BRISTOL-MYERS SQUIBB COMPANY-2023-151486

PATIENT
  Age: 64 Year
  Sex: Male
  Weight: 87.09 kg

DRUGS (1)
  1. REVLIMID [Suspect]
     Active Substance: LENALIDOMIDE
     Indication: Plasma cell myeloma
     Dosage: 14DON,7DOFF
     Route: 048

REACTIONS (6)
  - Nausea [Unknown]
  - Fatigue [Unknown]
  - Tremor [Unknown]
  - Off label use [Unknown]
  - Dizziness [Unknown]
  - Feeling abnormal [Unknown]
